FAERS Safety Report 8624110 (Version 2)
Quarter: 2013Q1

REPORT INFORMATION
  Report Type: Spontaneous
  Country: US (occurrence: US)
  Receive Date: 20120620
  Receipt Date: 20130321
  Transmission Date: 20140127
  Serious: Yes (Hospitalization, Other)
  Sender: FDA-Public Use
  Company Number: US-ROCHE-1076616

PATIENT
  Sex: Female
  Weight: 58.11 kg

DRUGS (3)
  1. BONIVA [Suspect]
     Indication: PRODUCT USED FOR UNKNOWN INDICATION
     Route: 065
     Dates: start: 201003
  2. FOSAMAX [Suspect]
     Indication: PRODUCT USED FOR UNKNOWN INDICATION
     Route: 065
     Dates: start: 199601
  3. FOLIC ACID [Concomitant]

REACTIONS (4)
  - Femur fracture [Unknown]
  - Hip fracture [Unknown]
  - Tibia fracture [Unknown]
  - Spinal fracture [Unknown]
